FAERS Safety Report 16400377 (Version 1)
Quarter: 2019Q2

REPORT INFORMATION
  Report Type: Report from Study
  Country: CO (occurrence: CO)
  Receive Date: 20190606
  Receipt Date: 20190606
  Transmission Date: 20190711
  Serious: Yes (Hospitalization)
  Sender: FDA-Public Use
  Company Number: CO-SA-2019SA150888

PATIENT
  Age: 77 Year
  Sex: Male

DRUGS (3)
  1. INSULIN GLULISINE [Suspect]
     Active Substance: INSULIN GLULISINE
     Indication: TYPE 2 DIABETES MELLITUS
     Dosage: 30 IU, TID
     Route: 058
     Dates: start: 200906, end: 201901
  2. LANTUS [Suspect]
     Active Substance: INSULIN GLARGINE
     Indication: TYPE 2 DIABETES MELLITUS
     Dosage: 14 IU, QD
     Route: 058
     Dates: start: 201801, end: 201901
  3. LINAGLIPTIN [Concomitant]
     Active Substance: LINAGLIPTIN
     Indication: TYPE 2 DIABETES MELLITUS
     Dosage: UNK

REACTIONS (2)
  - Renal disorder [Recovered/Resolved]
  - Cardiac disorder [Recovered/Resolved]

NARRATIVE: CASE EVENT DATE: 201812
